FAERS Safety Report 14267375 (Version 1)
Quarter: 2017Q4

REPORT INFORMATION
  Report Type: Spontaneous
  Country: US (occurrence: US)
  Receive Date: 20171208
  Receipt Date: 20171208
  Transmission Date: 20180321
  Serious: Yes (Other)
  Sender: FDA-Public Use
  Company Number: None

PATIENT
  Age: 51 Year
  Sex: Female
  Weight: 60.75 kg

DRUGS (5)
  1. TOPIRAMATE. [Suspect]
     Active Substance: TOPIRAMATE
     Indication: PAIN IN JAW
     Dates: start: 20171129, end: 20171207
  2. TOPIRAMATE. [Suspect]
     Active Substance: TOPIRAMATE
     Indication: TEMPOROMANDIBULAR JOINT SYNDROME
     Dates: start: 20171129, end: 20171207
  3. LISINOPRIL. [Concomitant]
     Active Substance: LISINOPRIL
  4. CARBAMAZEPINE. [Concomitant]
     Active Substance: CARBAMAZEPINE
  5. NAPROXEN. [Concomitant]
     Active Substance: NAPROXEN

REACTIONS (4)
  - Eye pain [None]
  - Vision blurred [None]
  - Angle closure glaucoma [None]
  - Idiosyncratic drug reaction [None]

NARRATIVE: CASE EVENT DATE: 20171207
